FAERS Safety Report 5199634-9 (Version None)
Quarter: 2007Q1

REPORT INFORMATION
  Report Type: 
  Country: None (occurrence: None)
  Receive Date: 20070103
  Receipt Date: 20070103
  Transmission Date: 20070707
  Serious: Yes (Other)
  Sender: FDA-Public Use
  Company Number: None

PATIENT
  Age: 58 Year
  Sex: Male
  Weight: 90.7194 kg

DRUGS (2)
  1. BONIVA [Suspect]
     Indication: FRACTURE
     Dosage: 1 TAB MONTHLY  PO   (1 DOSE)
     Route: 048
     Dates: start: 20061106, end: 20061106
  2. BONIVA [Suspect]
     Indication: OSTEOPENIA
     Dosage: 1 TAB MONTHLY  PO   (1 DOSE)
     Route: 048
     Dates: start: 20061106, end: 20061106

REACTIONS (6)
  - ARTHRALGIA [None]
  - CHEST DISCOMFORT [None]
  - DIARRHOEA [None]
  - GASTROOESOPHAGEAL REFLUX DISEASE [None]
  - NAUSEA [None]
  - RED BLOOD CELL SEDIMENTATION RATE INCREASED [None]
